FAERS Safety Report 7093157-8 (Version None)
Quarter: 2010Q4

REPORT INFORMATION
  Report Type: 
  Country: None (occurrence: None)
  Receive Date: 20101110
  Receipt Date: 20090528
  Transmission Date: 20110411
  Serious: No
  Sender: FDA-Public Use
  Company Number: US-KINGPHARMUSA00001-K200900648

PATIENT
  Sex: Female
  Weight: 53.061 kg

DRUGS (5)
  1. FLECTOR [Suspect]
     Indication: BACK PAIN
     Dosage: 1 PATCH, BID
     Route: 061
     Dates: start: 20090501
  2. VITAMINS [Concomitant]
     Dosage: UNK
  3. LOPRESSOR [Concomitant]
     Indication: CARDIAC DISORDER
     Dosage: UNK
  4. GERITOL [Concomitant]
     Dosage: UNK
  5. COD LIVER OIL [Concomitant]
     Dosage: UNK

REACTIONS (1)
  - DRUG INEFFECTIVE [None]
